FAERS Safety Report 15718800 (Version 1)
Quarter: 2018Q4

REPORT INFORMATION
  Report Type: Spontaneous
  Country: US (occurrence: US)
  Receive Date: 20181213
  Receipt Date: 20181213
  Transmission Date: 20190205
  Serious: No
  Sender: FDA-Public Use
  Company Number: US-GLAXOSMITHKLINE-US2018221605

PATIENT
  Age: 55 Year
  Sex: Female

DRUGS (1)
  1. TRANSDERM SCOP [Suspect]
     Active Substance: SCOPOLAMINE
     Indication: SOMNOLENCE
     Dosage: UNK

REACTIONS (9)
  - Adverse drug reaction [Not Recovered/Not Resolved]
  - Application site pruritus [Unknown]
  - Application site ulcer [Unknown]
  - Application site hypersensitivity [Not Recovered/Not Resolved]
  - Product use in unapproved indication [Not Recovered/Not Resolved]
  - Application site erythema [Not Recovered/Not Resolved]
  - Drug effective for unapproved indication [Unknown]
  - Dermatitis contact [Unknown]
  - Application site reaction [Unknown]
